FAERS Safety Report 24566698 (Version 6)
Quarter: 2025Q1

REPORT INFORMATION
  Report Type: Spontaneous
  Country: US (occurrence: US)
  Receive Date: 20241030
  Receipt Date: 20250324
  Transmission Date: 20250408
  Serious: Yes (Other)
  Sender: BAYER HEALTHCARE PHARMACEUTICALS INC.
  Company Number: US-BAYER-2024A154682

PATIENT
  Age: 29 Year
  Sex: Male

DRUGS (11)
  1. JIVI [Suspect]
     Active Substance: DAMOCTOCOG ALFA PEGOL
     Indication: Prophylaxis
     Dates: start: 20241009, end: 20241009
  2. JIVI [Suspect]
     Active Substance: DAMOCTOCOG ALFA PEGOL
     Indication: Intermenstrual bleeding
     Dates: start: 20241020, end: 20241020
  3. JIVI [Suspect]
     Active Substance: DAMOCTOCOG ALFA PEGOL
     Indication: Prophylaxis
     Dates: start: 20241005, end: 20241005
  4. JIVI [Suspect]
     Active Substance: DAMOCTOCOG ALFA PEGOL
     Indication: Prophylaxis
     Dosage: JIVI 4194 UNITS/INFUSE 4080 UNITS (+/-10%) IV BIW
     Route: 042
  5. JIVI [Suspect]
     Active Substance: DAMOCTOCOG ALFA PEGOL
     Indication: Prophylaxis
  6. JIVI [Suspect]
     Active Substance: DAMOCTOCOG ALFA PEGOL
     Indication: Prophylaxis
  7. JIVI [Suspect]
     Active Substance: DAMOCTOCOG ALFA PEGOL
     Indication: Prophylaxis
  8. JIVI [Suspect]
     Active Substance: DAMOCTOCOG ALFA PEGOL
     Indication: Prophylaxis
  9. JIVI [Suspect]
     Active Substance: DAMOCTOCOG ALFA PEGOL
     Indication: Prophylaxis
     Dosage: JIVI 3518 UNITS/ INFUSE 3900 UNITS BIW PRN
     Route: 042
  10. JIVI [Suspect]
     Active Substance: DAMOCTOCOG ALFA PEGOL
     Indication: Prophylaxis
     Route: 042
  11. JIVI [Suspect]
     Active Substance: DAMOCTOCOG ALFA PEGOL
     Indication: Prophylaxis
     Dosage: JIVI 3518 UNITS/ INFUSE 3900 UNITS (+/-10%) TWICE WEEKLY AND AS NEEDED FOR
     Route: 042

REACTIONS (8)
  - Haemarthrosis [None]
  - Cerebral haemorrhage [None]
  - Haemorrhage [None]
  - Haemorrhage [None]
  - Aneurysm [None]
  - Haemarthrosis [None]
  - Haemarthrosis [None]
  - Product dose omission issue [None]

NARRATIVE: CASE EVENT DATE: 20241009
